FAERS Safety Report 25105739 (Version 1)
Quarter: 2025Q1

REPORT INFORMATION
  Report Type: Spontaneous
  Country: US (occurrence: US)
  Receive Date: 20250321
  Receipt Date: 20250321
  Transmission Date: 20250408
  Serious: No
  Sender: BRAEBURN PHARMACEUTICALS
  Company Number: US-BRAEBURN-US-BRA-25-000143

PATIENT
  Age: 41 Year
  Sex: Female
  Weight: 62.585 kg

DRUGS (1)
  1. BRIXADI [Suspect]
     Active Substance: BUPRENORPHINE
     Indication: Illness
     Dosage: 96 MILLIGRAM, MONTHLY
     Route: 058
     Dates: start: 20250221

REACTIONS (3)
  - Vomiting [Unknown]
  - Abdominal discomfort [Unknown]
  - Product use in unapproved indication [Unknown]

NARRATIVE: CASE EVENT DATE: 20250221
